FAERS Safety Report 25424124 (Version 1)
Quarter: 2025Q2

REPORT INFORMATION
  Report Type: Spontaneous
  Country: US (occurrence: None)
  Receive Date: 20250604
  Receipt Date: 20250604
  Transmission Date: 20250717
  Serious: Yes (Hospitalization, Disabling, Other)
  Sender: FDA-CTU
  Company Number: None

PATIENT
  Age: 57 Year
  Sex: Female

DRUGS (2)
  1. MULTIHANCE [Suspect]
     Active Substance: GADOBENATE DIMEGLUMINE
  2. SYNTHROID [Concomitant]
     Active Substance: LEVOTHYROXINE SODIUM

REACTIONS (17)
  - Nephrogenic systemic fibrosis [None]
  - Pain [None]
  - Hypersensitivity [None]
  - Small fibre neuropathy [None]
  - Mitochondrial toxicity [None]
  - Cell death [None]
  - Dementia [None]
  - Sleep disorder [None]
  - Mast cell activation syndrome [None]
  - Postural orthostatic tachycardia syndrome [None]
  - Metal poisoning [None]
  - Hypertrophic cardiomyopathy [None]
  - Hepatomegaly [None]
  - Renal disorder [None]
  - Eye disorder [None]
  - Pancreatic disorder [None]
  - Autoimmune disorder [None]

NARRATIVE: CASE EVENT DATE: 20180401
